FAERS Safety Report 4689414-2 (Version None)
Quarter: 2005Q2

REPORT INFORMATION
  Report Type: 
  Country: None (occurrence: None)
  Receive Date: 20050608
  Receipt Date: 20050415
  Transmission Date: 20051028
  Serious: No
  Sender: FDA-Public Use
  Company Number: 2005-BP-06280BP

PATIENT
  Age: 74 Year
  Sex: Male

DRUGS (1)
  1. SPIRIVA [Suspect]
     Dosage: 18 MCG, IH
     Route: 055

REACTIONS (1)
  - AGEUSIA [None]
